FAERS Safety Report 15014327 (Version 1)
Quarter: 2018Q2

REPORT INFORMATION
  Report Type: Spontaneous
  Country: DE (occurrence: DE)
  Receive Date: 20180615
  Receipt Date: 20180615
  Transmission Date: 20180711
  Serious: Yes (Other)
  Sender: FDA-Public Use
  Company Number: DE-ASTRAZENECA-2018SE74882

PATIENT
  Sex: Female

DRUGS (2)
  1. OMEPRAZOL HEUMANN [Suspect]
     Active Substance: OMEPRAZOLE
     Indication: GASTROOESOPHAGEAL REFLUX DISEASE
     Route: 048
     Dates: start: 20180413
  2. OMEPRAZOL HEUMANN [Suspect]
     Active Substance: OMEPRAZOLE
     Indication: DYSGEUSIA
     Route: 048
     Dates: start: 20180413

REACTIONS (2)
  - Erythema [Recovered/Resolved]
  - Oedema [Recovered/Resolved]

NARRATIVE: CASE EVENT DATE: 20180414
